FAERS Safety Report 9628241 (Version 5)
Quarter: 2014Q1

REPORT INFORMATION
  Report Type: Spontaneous
  Country: PL (occurrence: PL)
  Receive Date: 20131017
  Receipt Date: 20140101
  Transmission Date: 20141002
  Serious: Yes (Death, Other)
  Sender: FDA-Public Use
  Company Number: PL-ROCHE-1289304

PATIENT
  Age: 10 Year
  Sex: Male
  Weight: 41 kg

DRUGS (5)
  1. MABTHERA [Suspect]
     Indication: CHRONIC ALLOGRAFT NEPHROPATHY
     Route: 042
     Dates: start: 20130522, end: 20130606
  2. CO-TRIMOXAZOLE [Suspect]
     Indication: PRODUCT USED FOR UNKNOWN INDICATION
     Route: 065
  3. CELLCEPT [Suspect]
     Indication: RENAL TRANSPLANT
     Route: 048
     Dates: start: 20130507, end: 20131003
  4. CYCLOSPORIN [Concomitant]
     Indication: IMMUNOSUPPRESSION
     Route: 048
     Dates: start: 20130507, end: 20131018
  5. PREDNISONE [Concomitant]
     Indication: IMMUNOSUPPRESSION
     Route: 050
     Dates: start: 20130507, end: 20131018

REACTIONS (2)
  - Acute respiratory failure [Fatal]
  - Pulmonary fibrosis [Unknown]
